FAERS Safety Report 7057712-3 (Version None)
Quarter: 2010Q4

REPORT INFORMATION
  Report Type: 
  Country: None (occurrence: None)
  Receive Date: 20101022
  Receipt Date: 20101013
  Transmission Date: 20110411
  Serious: Yes (Hospitalization)
  Sender: FDA-Public Use
  Company Number: US-PFIZER INC-2010121900

PATIENT
  Age: 83 Year
  Sex: Female
  Weight: 78.912 kg

DRUGS (19)
  1. SUNITINIB MALATE [Suspect]
     Indication: METASTATIC CARCINOMA OF THE BLADDER
     Dosage: 12.5 MG, 3X/DAY
     Route: 048
     Dates: start: 20090708, end: 20090721
  2. SUNITINIB MALATE [Suspect]
     Dosage: 25 MG, 1X/DAY
     Route: 048
     Dates: start: 20100909
  3. AZOPT [Concomitant]
     Dosage: 1 DROP OU, 2X/DAY
  4. BENADRYL [Concomitant]
     Dosage: 25 MG, 1X/DAY, PRN
     Route: 048
  5. GALENIC /CALCIUM/VITAMIN D/ [Concomitant]
     Route: 048
  6. CYANOCOBALAMIN [Concomitant]
     Dosage: 1000 UG, 1X/DAY FOR 1 WEEK, THEN ONCE A WEEK FOR A MONTH, THEN ONCE A MONTH
  7. DARVOCET-N 100 [Concomitant]
     Indication: PAIN
     Dosage: 100-650 MG, 2 TBS Q4H PRN
     Route: 048
  8. HYDROCHLOROTHIAZIDE [Concomitant]
     Dosage: 0.5 DF (25 MG), 1X/DAY
     Route: 048
  9. LASIX [Concomitant]
     Dosage: 20 MG, 1X/DAY
     Route: 048
  10. LEXAPRO [Concomitant]
     Dosage: 20 MG, 1X/DAY
     Route: 048
  11. NEURONTIN [Concomitant]
     Dosage: 300 MG, 1X/DAY
     Route: 048
  12. POTASSIUM CHLORIDE [Concomitant]
     Dosage: 1 DF, 1X/DAY, SUSTAINED ACTION
     Route: 048
  13. PREMARIN [Concomitant]
     Dosage: 0.625 MG/G, 1 GM QHS
     Route: 061
  14. PRESERVISION SOFTGELS WITH LUTEIN [Concomitant]
     Dosage: 1 DF, 1X/DAY
     Route: 048
  15. PRILOSEC [Concomitant]
     Dosage: 20 MG, 1X/DAY
     Route: 048
  16. PROCARDIA XL [Concomitant]
     Dosage: 30 MG, 2X/DAY, EXTENDED RELEASE
     Route: 048
  17. PROPOXYPHENE HCL AND ACETAMINOPHEN [Concomitant]
     Dosage: 1 DF, 65-650 MG, AS NEEDED
     Route: 048
  18. SYNTHROID [Concomitant]
     Dosage: 50 UG, 1X/DAY
     Route: 048
  19. ZOCOR [Concomitant]
     Dosage: 20 MG, 1X/DAY
     Route: 048

REACTIONS (3)
  - DYSPNOEA [None]
  - HAEMOGLOBIN DECREASED [None]
  - TROPONIN INCREASED [None]
